FAERS Safety Report 7631991-3 (Version None)
Quarter: 2011Q3

REPORT INFORMATION
  Report Type: 
  Country: None (occurrence: None)
  Receive Date: 20110725
  Receipt Date: 20110519
  Transmission Date: 20111222
  Serious: Yes (Other)
  Sender: FDA-Public Use
  Company Number: US-BRISTOL-MYERS SQUIBB COMPANY-15761075

PATIENT
  Age: 68 Year
  Sex: Female

DRUGS (8)
  1. METFORMIN HCL [Concomitant]
  2. COUMADIN [Suspect]
     Dosage: INCREASED TO 12.5 MG DAILY
  3. METOPROLOL TARTRATE [Concomitant]
  4. HYDROCHLOROTHIAZIDE [Concomitant]
  5. LEVOXYL [Concomitant]
  6. GABAPENTIN [Concomitant]
  7. BENAZEPRIL HYDROCHLORIDE [Concomitant]
  8. ADVICOR [Concomitant]

REACTIONS (1)
  - PROTHROMBIN TIME PROLONGED [None]
